FAERS Safety Report 10488416 (Version 1)
Quarter: 2014Q4

REPORT INFORMATION
  Report Type: Spontaneous
  Country: US (occurrence: None)
  Receive Date: 20141001
  Receipt Date: 20141001
  Transmission Date: 20150528
  Serious: Yes (Life-Threatening, Hospitalization, Disabling, Other)
  Sender: FDA-Public Use
  Company Number: None

PATIENT
  Age: 25 Year
  Sex: Male
  Weight: 88.45 kg

DRUGS (40)
  1. ZYPREXA [Suspect]
     Active Substance: OLANZAPINE
     Indication: PSYCHOTIC DISORDER
     Route: 048
     Dates: start: 199410, end: 199912
  2. SINGULAIR [Suspect]
     Active Substance: MONTELUKAST SODIUM
     Indication: HAND FRACTURE
     Route: 048
     Dates: start: 2000, end: 200006
  3. DAILY FACIAL CLEANSER [Concomitant]
  4. EUCERIN SKIN CALMING BODYWASH [Concomitant]
  5. CREST PRO-LIFE ORAL WASH [Concomitant]
  6. RISPERDAL [Suspect]
     Active Substance: RISPERIDONE
     Indication: DEPRESSION
     Route: 048
     Dates: start: 199410, end: 200512
  7. NAPROXEN. [Suspect]
     Active Substance: NAPROXEN
     Indication: BACK PAIN
     Route: 048
     Dates: start: 200906, end: 201304
  8. NAPROXEN. [Suspect]
     Active Substance: NAPROXEN
     Indication: HAND FRACTURE
     Route: 048
     Dates: start: 200906, end: 201304
  9. TRENTOIN [Concomitant]
  10. ASPIRIN. [Concomitant]
     Active Substance: ASPIRIN
  11. TEA [Concomitant]
     Active Substance: TEA LEAF
  12. GARLIC. [Concomitant]
     Active Substance: GARLIC
  13. HYLATOPIC PLUS FACE CREAM [Concomitant]
  14. RISPERDAL [Suspect]
     Active Substance: RISPERIDONE
     Indication: PSYCHOTIC DISORDER
     Route: 048
     Dates: start: 199410, end: 200512
  15. SINGULAIR [Suspect]
     Active Substance: MONTELUKAST SODIUM
     Indication: BACK PAIN
     Route: 048
     Dates: start: 2000, end: 200006
  16. TRAMADOL [Concomitant]
     Active Substance: TRAMADOL
  17. FISH OIL [Concomitant]
     Active Substance: FISH OIL
  18. NEUTROGENA PURE AND FREE BABY SUNBLOCK SPF 60PLUS PURESCREEN [Concomitant]
     Active Substance: TITANIUM DIOXIDE\ZINC OXIDE
  19. IBUPROFEN. [Suspect]
     Active Substance: IBUPROFEN
     Indication: HAND FRACTURE
     Route: 048
     Dates: start: 200208, end: 200802
  20. MULTIVITAMINS [Concomitant]
     Active Substance: VITAMINS
  21. CITRUCEL [Concomitant]
     Active Substance: METHYLCELLULOSE (4000 MPA.S)
  22. BENGAY ARTHRITIS PAIN RELIEVING [Concomitant]
     Active Substance: MENTHOL\METHYL SALICYLATE
  23. CETAPHIL [Concomitant]
     Active Substance: AVOBENZONE\OCTOCRYLENE\TRICLOSAN
  24. CERAVE EYE REPAIR CREAM [Concomitant]
  25. NEUTROGENA [Concomitant]
  26. ZOLOFT [Suspect]
     Active Substance: SERTRALINE HYDROCHLORIDE
     Indication: PSYCHOTIC DISORDER
     Route: 048
     Dates: start: 199912, end: 200304
  27. BENADRYL [Concomitant]
     Active Substance: DIPHENHYDRAMINE HYDROCHLORIDE
  28. BODY POWDER MEDICATED (LUCKY BRAND) [Concomitant]
  29. ABILIFY [Concomitant]
     Active Substance: ARIPIPRAZOLE
  30. BP WASH [Concomitant]
     Active Substance: BENZOYL PEROXIDE
  31. TRIAMCINOLONE ACETONIDE. [Concomitant]
     Active Substance: TRIAMCINOLONE ACETONIDE
  32. KETOCONAZOLE. [Concomitant]
     Active Substance: KETOCONAZOLE
  33. FLUTICASONE [Concomitant]
     Active Substance: FLUTICASONE\FLUTICASONE PROPIONATE
  34. NEUTROGENA DAILY MOISTURIZER [Concomitant]
  35. CERAVE THERAPEUTIC HAND CREAM [Concomitant]
  36. ZYPREXA [Suspect]
     Active Substance: OLANZAPINE
     Indication: DEPRESSION
     Route: 048
     Dates: start: 199410, end: 199912
  37. ZOLOFT [Suspect]
     Active Substance: SERTRALINE HYDROCHLORIDE
     Indication: DEPRESSION
     Route: 048
     Dates: start: 199912, end: 200304
  38. IBUPROFEN. [Suspect]
     Active Substance: IBUPROFEN
     Indication: BACK PAIN
     Route: 048
     Dates: start: 200208, end: 200802
  39. NYSTATIN. [Concomitant]
     Active Substance: NYSTATIN
  40. LOTRIMIN [Concomitant]
     Active Substance: CLOTRIMAZOLE

REACTIONS (11)
  - Headache [None]
  - Musculoskeletal stiffness [None]
  - Hallucination, visual [None]
  - Visual impairment [None]
  - Weight decreased [None]
  - Spinal disorder [None]
  - Inadequate analgesia [None]
  - Peripheral vascular disorder [None]
  - Thinking abnormal [None]
  - Dyspnoea [None]
  - Hypersomnia [None]

NARRATIVE: CASE EVENT DATE: 199410
